FAERS Safety Report 14404713 (Version 1)
Quarter: 2018Q1

REPORT INFORMATION
  Report Type: Spontaneous
  Country: FR (occurrence: FR)
  Receive Date: 20180118
  Receipt Date: 20180118
  Transmission Date: 20180509
  Serious: Yes (Hospitalization, Other)
  Sender: FDA-Public Use
  Company Number: FR-009507513-1711FRA004724

PATIENT
  Age: 61 Year
  Sex: Male
  Weight: 66 kg

DRUGS (2)
  1. KEYTRUDA [Suspect]
     Active Substance: PEMBROLIZUMAB
     Indication: LUNG NEOPLASM MALIGNANT
     Dosage: 200 MG FOR 21 DAYS
     Route: 042
     Dates: start: 20171019
  2. KEYTRUDA [Suspect]
     Active Substance: PEMBROLIZUMAB
     Dosage: UNK
     Dates: start: 20171110

REACTIONS (10)
  - Weight decreased [Recovered/Resolved]
  - General physical condition abnormal [Unknown]
  - Blood creatinine decreased [Unknown]
  - Nausea [Recovered/Resolved]
  - Dehydration [Recovered/Resolved]
  - Prerenal failure [Recovered/Resolved]
  - Vomiting [Recovered/Resolved]
  - Decreased appetite [Recovered/Resolved]
  - Food intolerance [Unknown]
  - Hypophagia [Unknown]

NARRATIVE: CASE EVENT DATE: 201710
